FAERS Safety Report 13488100 (Version 1)
Quarter: 2017Q2

REPORT INFORMATION
  Report Type: Spontaneous
  Country: US (occurrence: US)
  Receive Date: 20170426
  Receipt Date: 20170426
  Transmission Date: 20170830
  Serious: No
  Sender: FDA-Public Use
  Company Number: US-ALKERMES INC.-ALK-2016-002578

PATIENT

DRUGS (1)
  1. VIVITROL [Suspect]
     Active Substance: NALTREXONE
     Indication: PRODUCT USED FOR UNKNOWN INDICATION
     Dosage: 380 MG, QMO
     Route: 030

REACTIONS (7)
  - Injection site discolouration [Unknown]
  - Injection site reaction [Unknown]
  - Injection site induration [Unknown]
  - Injection site pain [Unknown]
  - Injection site bruising [Unknown]
  - Drug administration error [Unknown]
  - Injection site mass [Unknown]

NARRATIVE: CASE EVENT DATE: 20160901
